FAERS Safety Report 7632334-1 (Version None)
Quarter: 2011Q3

REPORT INFORMATION
  Report Type: 
  Country: None (occurrence: None)
  Receive Date: 20110725
  Receipt Date: 20100920
  Transmission Date: 20111222
  Serious: No
  Sender: FDA-Public Use
  Company Number: US-BRISTOL-MYERS SQUIBB COMPANY-15224132

PATIENT
  Age: 77 Year
  Sex: Female

DRUGS (5)
  1. COUMADIN [Suspect]
     Indication: THROMBOSIS
     Dosage: REDUCED TO 5 MG/D
     Dates: start: 20050101
  2. PLAVIX [Suspect]
     Indication: STENT PLACEMENT
     Dosage: FILM COATED TABLET
     Route: 048
     Dates: start: 20100601
  3. ASPIRIN [Suspect]
     Indication: STENT PLACEMENT
     Route: 065
  4. COUMADIN [Suspect]
     Indication: PULMONARY THROMBOSIS
     Dosage: REDUCED TO 5 MG/D
     Dates: start: 20050101
  5. LIPITOR [Concomitant]

REACTIONS (3)
  - EPISTAXIS [None]
  - CONTUSION [None]
  - HAEMORRHAGE [None]
